FAERS Safety Report 6054045-9 (Version None)
Quarter: 2009Q1

REPORT INFORMATION
  Report Type: 
  Country: None (occurrence: None)
  Receive Date: 20090127
  Receipt Date: 20090115
  Transmission Date: 20090719
  Serious: Yes (Hospitalization)
  Sender: FDA-Public Use
  Company Number: FR-WYE-H07753509

PATIENT
  Sex: Male

DRUGS (2)
  1. INIPOMP [Suspect]
     Indication: DIARRHOEA
     Route: 048
     Dates: start: 20080808, end: 20080822
  2. LEXOMIL [Concomitant]
     Dosage: UNKNOWN

REACTIONS (2)
  - HYPONATRAEMIA [None]
  - INAPPROPRIATE ANTIDIURETIC HORMONE SECRETION [None]
